FAERS Safety Report 4496797-5 (Version None)
Quarter: 2004Q4

REPORT INFORMATION
  Report Type: 
  Country: None (occurrence: None)
  Receive Date: 20041109
  Receipt Date: 20041104
  Transmission Date: 20050328
  Serious: Yes (Hospitalization)
  Sender: FDA-Public Use
  Company Number: JP-MERCK-0411USA00863

PATIENT
  Sex: Male

DRUGS (1)
  1. COZAAR [Suspect]
     Indication: HYPERTENSION
     Route: 048
     Dates: start: 20041029, end: 20041031

REACTIONS (3)
  - ABDOMINAL PAIN [None]
  - CHOLECYSTITIS [None]
  - LIVER DISORDER [None]
